FAERS Safety Report 10336210 (Version 3)
Quarter: 2014Q4

REPORT INFORMATION
  Report Type: Spontaneous
  Country: JP (occurrence: JP)
  Receive Date: 20140723
  Receipt Date: 20141202
  Transmission Date: 20150528
  Serious: Yes (Other)
  Sender: FDA-Public Use
  Company Number: PHHY2013JP158715

PATIENT
  Age: 64 Year
  Sex: Male
  Weight: 59 kg

DRUGS (27)
  1. THYRADIN S [Concomitant]
     Active Substance: LEVOTHYROXINE SODIUM
     Indication: HYPOTHYROIDISM
     Dosage: 12.5 MG, UNK
     Route: 048
  2. AFINITOR [Suspect]
     Active Substance: EVEROLIMUS
     Dosage: 5 MG, QD
     Route: 048
     Dates: end: 20120920
  3. TENORMIN [Concomitant]
     Active Substance: ATENOLOL
     Indication: HYPERTENSION
     Dosage: 37.5 MG, UNK
     Route: 048
     Dates: start: 201104
  4. FERRUM                             /01249901/ [Concomitant]
     Indication: ANAEMIA
     Dosage: 100 MG, UNK
     Route: 048
  5. MARZULENE [Concomitant]
     Active Substance: SODIUM GUALENATE
     Indication: CHRONIC GASTRITIS
     Dosage: 0.67 G, UNK
     Route: 048
  6. MAGNESIUM OXIDE. [Concomitant]
     Active Substance: MAGNESIUM OXIDE
     Indication: CONSTIPATION
     Dosage: 2 G, UNK
     Route: 048
     Dates: start: 20120729
  7. AFINITOR [Suspect]
     Active Substance: EVEROLIMUS
     Dosage: 10 MG, UNK
     Route: 065
     Dates: start: 201212
  8. ADALAT [Concomitant]
     Active Substance: NIFEDIPINE
     Indication: HYPERTENSION
     Dosage: UNK
     Route: 048
     Dates: start: 201104
  9. POSTERISAN [Concomitant]
     Active Substance: LIDOCAINE
     Indication: ANAL FISTULA
     Dosage: 4 G, UNK
     Route: 061
  10. AFINITOR [Suspect]
     Active Substance: EVEROLIMUS
     Dosage: UNK
     Route: 065
     Dates: start: 200509
  11. ZYLORIC [Concomitant]
     Active Substance: ALLOPURINOL
     Indication: HYPERURICAEMIA
     Dosage: 100 MG, UNK
     Route: 048
  12. AFINITOR [Suspect]
     Active Substance: EVEROLIMUS
     Dosage: 10 MG, QD
     Route: 048
     Dates: start: 20120507
  13. AFINITOR [Suspect]
     Active Substance: EVEROLIMUS
     Dosage: 10 MG, UNK
     Route: 065
     Dates: start: 201205
  14. MICARDIS [Concomitant]
     Active Substance: TELMISARTAN
     Indication: HYPERTENSION
     Dosage: 40 MG, UNK
     Route: 048
     Dates: start: 20120423
  15. TAKEPRON [Concomitant]
     Active Substance: LANSOPRAZOLE
     Indication: OESOPHAGEAL ULCER
     Dosage: 30 MG, UNK
     Route: 048
  16. MAGMITT [Concomitant]
     Active Substance: MAGNESIUM OXIDE
     Indication: CONSTIPATION
     Dosage: 500 MG, UNK
     Route: 048
     Dates: start: 20120730
  17. MICAMLO [Concomitant]
     Active Substance: AMLODIPINE BESYLATE\TELMISARTAN
     Indication: HYPERTENSION
     Dosage: 5 MG, UNK
     Route: 048
     Dates: start: 201104, end: 20120422
  18. URSO [Concomitant]
     Active Substance: URSODIOL
     Indication: LIVER DISORDER
     Dosage: 50 MG, UNK
     Route: 048
  19. AFINITOR [Suspect]
     Active Substance: EVEROLIMUS
     Indication: RENAL CELL CARCINOMA
     Dosage: 10 MG, QD
     Route: 048
     Dates: start: 20111201
  20. DEPAS [Concomitant]
     Active Substance: ETIZOLAM
     Indication: INSOMNIA
     Dosage: 0.5 MG, UNK
     Route: 048
  21. KALIMATE [Concomitant]
     Active Substance: POLYSTYRENE SULFONIC ACID
     Indication: HYPERCALCAEMIA
     Dosage: 5 G, UNK
     Route: 048
  22. CELESTAMINE [Concomitant]
     Active Substance: BETAMETHASONE\DEXCHLORPHENIRAMINE MALEATE
     Indication: PRURITUS
     Dosage: 1 DF, UNK
     Route: 048
     Dates: start: 20120709, end: 20120729
  23. INTERFERON ALFA NOS [Concomitant]
     Active Substance: INTERFERON ALFA-2A OR INTERFERON ALFA-2B
     Indication: RENAL CELL CARCINOMA
     Dosage: UNK
     Route: 065
     Dates: start: 200503
  24. AFINITOR [Suspect]
     Active Substance: EVEROLIMUS
     Dosage: 5 MG, QD
     Route: 048
  25. AFINITOR [Suspect]
     Active Substance: EVEROLIMUS
     Dosage: 5 MG, UNK
     Route: 065
     Dates: start: 201202
  26. AFINITOR [Suspect]
     Active Substance: EVEROLIMUS
     Dosage: 5 MG, UNK
     Route: 065
     Dates: start: 201206
  27. AMLODIPINE [Concomitant]
     Active Substance: AMLODIPINE BESYLATE
     Indication: HYPERTENSION
     Dosage: 5 MG, UNK
     Route: 048
     Dates: start: 20120423

REACTIONS (9)
  - Malignant neoplasm progression [Not Recovered/Not Resolved]
  - Interstitial lung disease [Recovering/Resolving]
  - Platelet count decreased [Unknown]
  - Haemoglobin decreased [Not Recovered/Not Resolved]
  - Cell marker increased [Recovering/Resolving]
  - Mouth ulceration [Recovered/Resolved]
  - Hyperglycaemia [Unknown]
  - Bone marrow failure [Unknown]
  - Stomatitis [Recovered/Resolved]

NARRATIVE: CASE EVENT DATE: 20120201
